FAERS Safety Report 17330351 (Version 2)
Quarter: 2020Q1

REPORT INFORMATION
  Report Type: Report from Study
  Country: US (occurrence: US)
  Receive Date: 20200128
  Receipt Date: 20200311
  Transmission Date: 20200409
  Serious: No
  Sender: FDA-Public Use
  Company Number: US-SA-2020SA014271

PATIENT
  Age: 65 Year
  Sex: Female

DRUGS (2)
  1. DUPILUMAB [Suspect]
     Active Substance: DUPILUMAB
     Indication: ASTHMA
     Dosage: INITIAL DOSE
     Route: 065
  2. DUPILUMAB [Suspect]
     Active Substance: DUPILUMAB
     Dosage: 300 MG
     Route: 058
     Dates: start: 20191126

REACTIONS (4)
  - Injection site rash [Not Recovered/Not Resolved]
  - Product use issue [Unknown]
  - Injection site erythema [Not Recovered/Not Resolved]
  - Product dose omission [Unknown]
